FAERS Safety Report 14893477 (Version 29)
Quarter: 2025Q4

REPORT INFORMATION
  Report Type: Report from Study
  Country: US (occurrence: US)
  Receive Date: 20180514
  Receipt Date: 20251216
  Transmission Date: 20260117
  Serious: Yes (Other)
  Sender: TAKEDA
  Company Number: US-SHIRE-US201816558

PATIENT
  Age: 52 Year
  Sex: Female
  Weight: 73 kg

DRUGS (48)
  1. HUMAN IMMUNOGLOBULIN G\HYALURONIDASE RECOMBINANT HUMAN [Suspect]
     Active Substance: HUMAN IMMUNOGLOBULIN G\HYALURONIDASE (HUMAN RECOMBINANT)
     Indication: Immunodeficiency common variable
     Dosage: UNK UNK, MONTHLY
  2. CUVITRU [Suspect]
     Active Substance: HUMAN IMMUNOGLOBULIN G
     Indication: Immunodeficiency
     Dosage: 15 GRAM, 1/WEEK
  3. CUVITRU [Suspect]
     Active Substance: HUMAN IMMUNOGLOBULIN G
     Indication: Immunodeficiency common variable
     Dosage: 18 GRAM, Q2WEEKS
  4. CUVITRU [Suspect]
     Active Substance: HUMAN IMMUNOGLOBULIN G
     Indication: Primary immunodeficiency syndrome
     Dosage: 18 GRAM, 1/WEEK
  5. SINGULAIR [Suspect]
     Active Substance: MONTELUKAST SODIUM
     Indication: Product used for unknown indication
     Dosage: UNK
  6. FLONASE [Suspect]
     Active Substance: FLUTICASONE PROPIONATE
     Indication: Product used for unknown indication
     Dosage: UNK
  7. DOXYCYCLINE [Suspect]
     Active Substance: DOXYCYCLINE
     Indication: Product used for unknown indication
     Dosage: UNK
  8. DIPHENHYDRAMINE HYDROCHLORIDE [Concomitant]
     Active Substance: DIPHENHYDRAMINE HYDROCHLORIDE
     Dosage: UNK
  9. ZETONNA [Concomitant]
     Active Substance: CICLESONIDE
     Dosage: UNK
  10. VITAMIN D3 [Concomitant]
     Active Substance: CHOLECALCIFEROL
     Dosage: UNK
  11. METOPROLOL SUCCINATE [Concomitant]
     Active Substance: METOPROLOL SUCCINATE
     Dosage: UNK
  12. CYANOCOBALAMIN [Concomitant]
     Active Substance: CYANOCOBALAMIN
     Dosage: UNK
  13. METHOCARBAMOL [Concomitant]
     Active Substance: METHOCARBAMOL
     Dosage: UNK
  14. DICYCLOMINE HYDROCHLORIDE [Concomitant]
     Active Substance: DICYCLOMINE HYDROCHLORIDE
     Dosage: UNK
  15. PROGESTERONE [Concomitant]
     Active Substance: PROGESTERONE
     Dosage: UNK
  16. PROAIR HFA [Concomitant]
     Active Substance: ALBUTEROL SULFATE
     Dosage: UNK
  17. ACETAMINOPHEN [Concomitant]
     Active Substance: ACETAMINOPHEN
     Dosage: UNK
  18. CALCIUM [Concomitant]
     Active Substance: CALCIUM
     Dosage: UNK
  19. HYDROCHLOROTHIAZIDE [Concomitant]
     Active Substance: HYDROCHLOROTHIAZIDE
     Dosage: UNK
  20. OMEPRAZOLE [Concomitant]
     Active Substance: OMEPRAZOLE
     Dosage: UNK
  21. CETIRIZINE HCL [Concomitant]
     Active Substance: CETIRIZINE HYDROCHLORIDE
     Dosage: UNK
  22. Lmx [Concomitant]
     Dosage: UNK
  23. OXYCODONE HYDROCHLORIDE [Concomitant]
     Active Substance: OXYCODONE HYDROCHLORIDE
     Dosage: UNK
  24. CYMBALTA [Concomitant]
     Active Substance: DULOXETINE HYDROCHLORIDE
     Dosage: UNK
  25. EPINEPHRINE [Concomitant]
     Active Substance: EPINEPHRINE
     Dosage: UNK
  26. DICYCLOMINE [Concomitant]
     Active Substance: DICYCLOMINE HYDROCHLORIDE
     Dosage: UNK
  27. OXYCODONE [Concomitant]
     Active Substance: OXYCODONE
     Dosage: UNK
  28. PROAIR DIGIHALER [Concomitant]
     Active Substance: ALBUTEROL SULFATE
     Dosage: UNK
  29. CETIRIZINE [Concomitant]
     Active Substance: CETIRIZINE HYDROCHLORIDE
     Dosage: UNK
  30. PRASTERONE [Concomitant]
     Active Substance: PRASTERONE
     Dosage: UNK
  31. DULOXETINE [Concomitant]
     Active Substance: DULOXETINE
     Dosage: UNK
  32. MELOXICAM [Concomitant]
     Active Substance: MELOXICAM
     Dosage: UNK
  33. Moringa [Concomitant]
     Dosage: UNK
  34. AMLODIPINE BESYLATE [Concomitant]
     Active Substance: AMLODIPINE BESYLATE
     Dosage: UNK
  35. HYDROXYZINE [Concomitant]
     Active Substance: HYDROXYZINE HYDROCHLORIDE
     Dosage: UNK
  36. ALBUTEROL SULFATE [Concomitant]
     Active Substance: ALBUTEROL SULFATE
     Dosage: UNK
  37. CHOLESTYRAMINE [Concomitant]
     Active Substance: CHOLESTYRAMINE
     Dosage: UNK
  38. FAMOTIDINE [Concomitant]
     Active Substance: FAMOTIDINE
     Dosage: UNK
  39. ARMODAFINIL [Concomitant]
     Active Substance: ARMODAFINIL
     Dosage: UNK
  40. ASPIRIN [Concomitant]
     Active Substance: ASPIRIN
     Dosage: UNK
  41. L Lysine [Concomitant]
     Dosage: UNK
  42. TRAZODONE HCL [Concomitant]
     Active Substance: TRAZODONE HYDROCHLORIDE
     Dosage: UNK
  43. LACTASE [Concomitant]
     Active Substance: LACTASE
     Dosage: UNK
  44. ZEPBOUND [Concomitant]
     Active Substance: TIRZEPATIDE
     Dosage: UNK
  45. THEANINE [Concomitant]
     Active Substance: THEANINE
     Dosage: UNK
  46. PREGABALIN [Concomitant]
     Active Substance: PREGABALIN
     Dosage: UNK
  47. MAGNESIUM [Concomitant]
     Active Substance: MAGNESIUM
     Dosage: UNK
  48. FERROUS SULFATE [Concomitant]
     Active Substance: FERROUS SULFATE
     Dosage: UNK

REACTIONS (48)
  - Eye infection [Not Recovered/Not Resolved]
  - Haematochezia [Unknown]
  - Pneumonia [Unknown]
  - Breast cancer [Unknown]
  - Impaired gastric emptying [Unknown]
  - Sinus headache [Unknown]
  - Malaise [Unknown]
  - Feeling abnormal [Unknown]
  - Bronchitis [Unknown]
  - Candida infection [Unknown]
  - COVID-19 [Not Recovered/Not Resolved]
  - Protein total decreased [Unknown]
  - Urine output decreased [Unknown]
  - Dehydration [Unknown]
  - Sinusitis [Not Recovered/Not Resolved]
  - Productive cough [Unknown]
  - White blood cell count increased [Unknown]
  - Blood potassium decreased [Unknown]
  - Blood sodium decreased [Unknown]
  - Injection site reaction [Recovered/Resolved]
  - Nasopharyngitis [Unknown]
  - Iron deficiency anaemia [Unknown]
  - Tendon disorder [Unknown]
  - Gallbladder disorder [Unknown]
  - Viral infection [Unknown]
  - Drug ineffective [Unknown]
  - Infusion site discharge [Unknown]
  - Infusion related reaction [Unknown]
  - Bite [Unknown]
  - Gastrointestinal disorder [Unknown]
  - Dermatitis contact [Recovered/Resolved]
  - Needle issue [Unknown]
  - Tooth fracture [Unknown]
  - Influenza [Recovered/Resolved]
  - Infection [Unknown]
  - Product dose omission issue [Unknown]
  - Inappropriate schedule of product administration [Unknown]
  - Respiratory tract congestion [Unknown]
  - Oropharyngeal pain [Unknown]
  - Infusion site haemorrhage [Unknown]
  - Rash erythematous [Unknown]
  - Asthenia [Unknown]
  - Dizziness [Unknown]
  - Headache [Unknown]
  - Fatigue [Unknown]
  - Infusion site pain [Unknown]
  - Dyspnoea [Unknown]
  - Nausea [Unknown]

NARRATIVE: CASE EVENT DATE: 20230228
